FAERS Safety Report 17916036 (Version 1)
Quarter: 2020Q2

REPORT INFORMATION
  Report Type: Spontaneous
  Country: US (occurrence: US)
  Receive Date: 20200619
  Receipt Date: 20200619
  Transmission Date: 20200714
  Serious: Yes (Death, Life-Threatening, Hospitalization, Disabling)
  Sender: FDA-Public Use
  Company Number: None

PATIENT
  Age: 17 Year
  Sex: Female
  Weight: 51.75 kg

DRUGS (1)
  1. NEXPLANON [Suspect]
     Active Substance: ETONOGESTREL
     Indication: CONTRACEPTION
     Dosage: ?          OTHER ROUTE:IMPLANTED UNDER UPPER ARM?
     Dates: start: 20170601, end: 20181226

REACTIONS (4)
  - Complication associated with device [None]
  - Implantation complication [None]
  - Vaginal haemorrhage [None]
  - Alveolar rhabdomyosarcoma [None]

NARRATIVE: CASE EVENT DATE: 20170601
